FAERS Safety Report 7930886-5 (Version None)
Quarter: 2011Q4

REPORT INFORMATION
  Report Type: 
  Country: None (occurrence: None)
  Receive Date: 20111108
  Receipt Date: 20110523
  Transmission Date: 20120403
  Serious: Yes (Death)
  Sender: FDA-Public Use
  Company Number: PHHY2011US67174

PATIENT
  Age: 60 Year
  Sex: Male

DRUGS (7)
  1. TAXOL [Concomitant]
  2. ZOMETA [Suspect]
     Indication: BONE NEOPLASM MALIGNANT
     Dosage: 4 MG, QMO, INTRAVENOUS
     Route: 042
  3. CARBOPLATIN [Concomitant]
  4. NYSTATIN [Concomitant]
  5. ACETAMINOPHEN [Concomitant]
  6. XANAX [Concomitant]
  7. HYDROCODONE BITARTRATE [Concomitant]

REACTIONS (10)
  - WEIGHT DECREASED [None]
  - DECREASED APPETITE [None]
  - NEOPLASM MALIGNANT [None]
  - OEDEMA PERIPHERAL [None]
  - DYSPNOEA [None]
  - FATIGUE [None]
  - MALAISE [None]
  - LUNG NEOPLASM [None]
  - MUSCULOSKELETAL DISCOMFORT [None]
  - LUNG ADENOCARCINOMA [None]
